FAERS Safety Report 17564432 (Version 1)
Quarter: 2020Q1

REPORT INFORMATION
  Report Type: Spontaneous
  Country: AT (occurrence: AT)
  Receive Date: 20200320
  Receipt Date: 20200320
  Transmission Date: 20200409
  Serious: Yes (Hospitalization, Other)
  Sender: FDA-Public Use
  Company Number: AT-009507513-2003AUT005310

PATIENT
  Age: 60 Year
  Sex: Male
  Weight: 95 kg

DRUGS (7)
  1. ATOZET 10 MG/80 MG FILMTABLETTEN [Suspect]
     Active Substance: ATORVASTATIN CALCIUM\EZETIMIBE
     Indication: HYPERCHOLESTEROLAEMIA
     Dosage: 1 TABLET DAILY (0-0-1-0)
     Route: 048
     Dates: start: 20191215, end: 20200214
  2. ALLOPURINOL. [Concomitant]
     Active Substance: ALLOPURINOL
     Indication: BLOOD URIC ACID INCREASED
     Dosage: 100 MILLIGRAM, QD (0-0-1)
     Route: 048
     Dates: start: 201903
  3. CANDESARTAN PLUS TAKEDA [Concomitant]
     Indication: HYPERTENSION
     Dosage: 1 DOSAGE FORM, QD (1-0-0)
     Route: 048
  4. CONCOR [Concomitant]
     Active Substance: BISOPROLOL FUMARATE
     Indication: HYPERTENSION
     Dosage: 1 DOSAGE FORM, QD (1-0-1)
     Route: 048
  5. THROMBO ASS [Concomitant]
     Active Substance: ASPIRIN
     Indication: CARDIAC DISORDER
     Dosage: 100 MILLIGRAM, QD (1-0-0)
     Route: 048
     Dates: start: 201907
  6. AGLANDIN [Concomitant]
     Active Substance: TAMSULOSIN HYDROCHLORIDE
     Indication: URINARY RETENTION
     Dosage: 0.4 MILLIGRAM, QD (0-0-1)
     Route: 048
     Dates: start: 201810
  7. CANDESARTAN. [Concomitant]
     Active Substance: CANDESARTAN
     Indication: HYPERTENSION
     Dosage: 16 MILLIGRAM, QD (0-0-1)
     Route: 048

REACTIONS (8)
  - Muscle spasms [Recovered/Resolved]
  - Sciatica [Recovering/Resolving]
  - Hospitalisation [Recovered/Resolved]
  - Gait disturbance [Recovering/Resolving]
  - Intervertebral disc protrusion [Unknown]
  - Pain [Recovering/Resolving]
  - Anaesthesia [Recovering/Resolving]
  - Muscle enzyme increased [Unknown]

NARRATIVE: CASE EVENT DATE: 20200207
